FAERS Safety Report 4710280-0 (Version None)
Quarter: 2005Q3

REPORT INFORMATION
  Report Type: 
  Country: None (occurrence: None)
  Receive Date: 20050711
  Receipt Date: 20050628
  Transmission Date: 20060218
  Serious: Yes (Other)
  Sender: FDA-Public Use
  Company Number: US-JNJFOC-20050601127

PATIENT
  Sex: Female
  Weight: 67.13 kg

DRUGS (4)
  1. REMICADE [Suspect]
     Indication: CROHN'S DISEASE
     Route: 042
  2. URSODIOL [Concomitant]
  3. PROTONIX [Concomitant]
  4. ASACOL [Concomitant]

REACTIONS (1)
  - LUPUS-LIKE SYNDROME [None]
